FAERS Safety Report 5718918-6 (Version None)
Quarter: 2008Q2

REPORT INFORMATION
  Report Type: 
  Country: None (occurrence: None)
  Receive Date: 20080425
  Receipt Date: 20080423
  Transmission Date: 20081010
  Serious: Yes (Other)
  Sender: FDA-Public Use
  Company Number: GB-MERCK-0804GBR00127

PATIENT
  Sex: Female

DRUGS (2)
  1. BLOCADREN [Suspect]
     Route: 048
  2. BIMATOPROST [Suspect]
     Route: 047

REACTIONS (1)
  - MACULAR OEDEMA [None]
